FAERS Safety Report 19900292 (Version 1)
Quarter: 2021Q3

REPORT INFORMATION
  Report Type: Spontaneous
  Country: DE (occurrence: DE)
  Receive Date: 20210929
  Receipt Date: 20210929
  Transmission Date: 20211014
  Serious: Yes (Hospitalization)
  Sender: FDA-Public Use
  Company Number: DE-MYLANLABS-2021M1066577

PATIENT
  Age: 82 Year
  Sex: Male

DRUGS (13)
  1. TILIDIN [Concomitant]
     Active Substance: NALOXONE HYDROCHLORIDE\TILIDINE HYDROCHLORIDE
     Dosage: 8|100 MG, 1?1?0?1, TABLETTEN
     Route: 048
  2. TAMSULOSIN [Concomitant]
     Active Substance: TAMSULOSIN
     Dosage: 0.4 MILLIGRAM (0.4 MG, 1?0?0?0, KAPSELN)
     Route: 048
  3. BENSERAZIDE W/LEVODOPA [Concomitant]
     Active Substance: BENSERAZIDE\LEVODOPA
     Dosage: 12.5|50 MG, 1?0?1?0, TABLETTEN
     Route: 048
  4. LIXIANA [Concomitant]
     Active Substance: EDOXABAN TOSYLATE
     Dosage: 30 MILLIGRAM (30 MG, 1?0?0?0, TABLETTEN)
     Route: 048
  5. RAMIPRIL. [Suspect]
     Active Substance: RAMIPRIL
     Indication: PRODUCT USED FOR UNKNOWN INDICATION
     Dosage: 25 MILLIGRAM (2.5 MG, 1?0?0?0, TABLETTEN)
     Route: 048
  6. TORASEMIDE [Suspect]
     Active Substance: TORSEMIDE
     Indication: PRODUCT USED FOR UNKNOWN INDICATION
     Dosage: 10 MILLIGRAM (10 MG, 1?1?0?0, TABLETTEN)
     Route: 048
  7. RISPERIDON [Concomitant]
     Active Substance: RISPERIDONE
     Dosage: 1 MILLIGRAM (1 MG, 0.5?0?0?1, TABLETTEN)
     Route: 048
  8. MELPERON [Concomitant]
     Active Substance: MELPERONE
     Dosage: 50 MILLIGRAM (50 MG, 0?0?0?1, TABLETTEN)
     Route: 048
  9. SIMVASTATIN. [Concomitant]
     Active Substance: SIMVASTATIN
     Dosage: 40 MILLIGRAM (40 MG, 0?0?1?0, TABLETTEN)
     Route: 048
  10. PANTOPRAZOL                        /01263201/ [Concomitant]
     Active Substance: PANTOPRAZOLE
     Dosage: 40 MILLIGRAM (40 MG, 0?0?1?0, TABLETTEN)
     Route: 048
  11. MOVICOL [Concomitant]
     Active Substance: POLYETHYLENE GLYCOL 3350\POTASSIUM CHLORIDE\SODIUM BICARBONATE\SODIUM CHLORIDE
     Dosage: 1?0?0?0, PULVER ZUM AUFL?SEN
     Route: 048
  12. METAMIZOL                          /06276701/ [Concomitant]
     Active Substance: METAMIZOLE
     Dosage: 500 MILLIGRAM (500 MG, 1?0?0?1, TABLETTEN)
     Route: 048
  13. ULTIBRO BREEZHALER [Concomitant]
     Active Substance: GLYCOPYRRONIUM\INDACATEROL
     Dosage: 1?0?0?0, DOSIERAEROSOL
     Route: 048

REACTIONS (3)
  - General physical health deterioration [Unknown]
  - Oliguria [Unknown]
  - Renal impairment [Unknown]
